FAERS Safety Report 13200318 (Version 2)
Quarter: 2017Q1

REPORT INFORMATION
  Report Type: Spontaneous
  Country: US (occurrence: US)
  Receive Date: 20170208
  Receipt Date: 20170309
  Transmission Date: 20170428
  Serious: No
  Sender: FDA-Public Use
  Company Number: US-BIOGEN-2017BI00352075

PATIENT
  Sex: Female

DRUGS (1)
  1. AVONEX [Suspect]
     Active Substance: INTERFERON BETA-1A
     Indication: RELAPSING-REMITTING MULTIPLE SCLEROSIS
     Route: 065
     Dates: start: 2006, end: 2006

REACTIONS (5)
  - Needle fatigue [Unknown]
  - Influenza like illness [Unknown]
  - Fatigue [Unknown]
  - Treatment failure [Unknown]
  - Myalgia [Unknown]
